FAERS Safety Report 18967717 (Version 2)
Quarter: 2021Q1

REPORT INFORMATION
  Report Type: Report from Study
  Country: US (occurrence: US)
  Receive Date: 20210304
  Receipt Date: 20210317
  Transmission Date: 20210420
  Serious: Yes (Hospitalization)
  Sender: FDA-Public Use
  Company Number: US-JNJFOC-20210248194

PATIENT
  Age: 23 Year
  Sex: Female
  Weight: 59.02 kg

DRUGS (5)
  1. INFLIXIMAB, RECOMBINANT [Suspect]
     Active Substance: INFLIXIMAB
     Indication: INFLAMMATORY BOWEL DISEASE
     Route: 042
  2. SIMPONI [Concomitant]
     Active Substance: GOLIMUMAB
     Route: 065
  3. SIMPONI [Concomitant]
     Active Substance: GOLIMUMAB
     Route: 065
     Dates: end: 201606
  4. INFLIXIMAB, RECOMBINANT [Suspect]
     Active Substance: INFLIXIMAB
     Route: 042
     Dates: start: 20120605, end: 201507
  5. SIMPONI [Concomitant]
     Active Substance: GOLIMUMAB
     Indication: INFLAMMATORY BOWEL DISEASE
     Route: 065
     Dates: end: 20160205

REACTIONS (1)
  - Nephrolithiasis [Recovered/Resolved with Sequelae]

NARRATIVE: CASE EVENT DATE: 20210116
